FAERS Safety Report 8553663-3 (Version None)
Quarter: 2012Q3

REPORT INFORMATION
  Report Type: 
  Country: None (occurrence: None)
  Receive Date: 20120725
  Receipt Date: 20120725
  Transmission Date: 20120928
  Serious: No
  Sender: FDA-Public Use
  Company Number: None

PATIENT
  Age: 77 Year
  Sex: Female
  Weight: 64.8644 kg

DRUGS (1)
  1. MORPHINE SULFATE [Suspect]
     Indication: PAIN
     Dosage: 2 MG, TWICE, IV
     Route: 042
     Dates: start: 20110522, end: 20110522

REACTIONS (2)
  - PALPITATIONS [None]
  - CHEST PAIN [None]
